FAERS Safety Report 7419828-9 (Version None)
Quarter: 2011Q2

REPORT INFORMATION
  Report Type: 
  Country: None (occurrence: None)
  Receive Date: 20110413
  Receipt Date: 20110413
  Transmission Date: 20111010
  Serious: Yes (Disabling)
  Sender: FDA-Public Use
  Company Number: None

PATIENT
  Age: 37 Year
  Sex: Female
  Weight: 122.4712 kg

DRUGS (2)
  1. ABILIFY [Suspect]
  2. CELEXA [Suspect]

REACTIONS (2)
  - PALPITATIONS [None]
  - TREMOR [None]
